FAERS Safety Report 4602753-6 (Version None)
Quarter: 2005Q1

REPORT INFORMATION
  Report Type: 
  Country: None (occurrence: None)
  Receive Date: 20050309
  Receipt Date: 20041020
  Transmission Date: 20050727
  Serious: Yes (Life-Threatening, Hospitalization, Disabling)
  Sender: FDA-Public Use
  Company Number: DE-MERCK-0410DEU00606

PATIENT
  Age: 72 Year
  Sex: Male
  Weight: 90 kg

DRUGS (2)
  1. VIOXX [Suspect]
     Indication: INTERVERTEBRAL DISC OPERATION
     Route: 048
     Dates: start: 20040628, end: 20040930
  2. VIOXX [Suspect]
     Indication: OSTEOARTHRITIS
     Route: 048
     Dates: start: 20040628, end: 20040930

REACTIONS (6)
  - ATRIAL FIBRILLATION [None]
  - ATRIAL FLUTTER [None]
  - ATRIAL THROMBOSIS [None]
  - CARDIAC FAILURE [None]
  - MITRAL VALVE PROLAPSE [None]
  - PULMONARY OEDEMA [None]
